FAERS Safety Report 4531107-6 (Version None)
Quarter: 2004Q4

REPORT INFORMATION
  Report Type: 
  Country: None (occurrence: None)
  Receive Date: 20041215
  Receipt Date: 20041202
  Transmission Date: 20050328
  Serious: No
  Sender: FDA-Public Use
  Company Number: R301129-3002-CDN

PATIENT
  Age: 57 Year
  Sex: Female
  Weight: 96.8 kg

DRUGS (5)
  1. RABEPRAZOLE SODIUM [Suspect]
     Indication: DYSPEPSIA
     Dosage: 20 MG, ORAL
     Route: 048
     Dates: start: 20040722, end: 20040901
  2. RABEPRAZOLE SODIUM [Suspect]
     Indication: DYSPEPSIA
     Dosage: 20 MG, ORAL
     Route: 048
     Dates: start: 20040902
  3. ALTACE (RAMIPRIL) [Concomitant]
  4. ELTROXIN (LEVOTHYROXINE SODIUM) [Concomitant]
  5. HYDROCHLOROTHIAZIDE [Concomitant]

REACTIONS (2)
  - ATRIAL FIBRILLATION [None]
  - THERAPY NON-RESPONDER [None]
